FAERS Safety Report 4688557-7 (Version None)
Quarter: 2005Q2

REPORT INFORMATION
  Report Type: 
  Country: None (occurrence: None)
  Receive Date: 20050613
  Receipt Date: 20050527
  Transmission Date: 20051028
  Serious: Yes (Hospitalization, Other)
  Sender: FDA-Public Use
  Company Number: JP-ABBOTT-05P-087-0301781-00

PATIENT
  Sex: Female

DRUGS (9)
  1. SEVOFLURANE [Suspect]
     Indication: ANAESTHESIA
     Dosage: 5-5%
     Route: 055
     Dates: start: 20050511, end: 20050511
  2. VECURONIUM BROMIDE [Concomitant]
     Indication: MUSCLE RELAXANT THERAPY
     Route: 042
     Dates: start: 20050511, end: 20050511
  3. VECURONIUM BROMIDE [Concomitant]
     Route: 042
     Dates: start: 20050511, end: 20050511
  4. FENTANYL CITRATE [Concomitant]
     Indication: ANAESTHESIA
     Route: 042
     Dates: start: 20050511, end: 20050511
  5. NITROUS OXIDE [Concomitant]
     Indication: ANAESTHESIA
     Route: 055
     Dates: start: 20050511, end: 20050511
  6. ATROPINE [Concomitant]
     Indication: DRUG USE FOR UNKNOWN INDICATION
     Route: 042
     Dates: start: 20050511, end: 20050511
  7. ATROPINE [Concomitant]
     Route: 042
     Dates: start: 20050511, end: 20050511
  8. SODIUM BICARBONATE [Concomitant]
     Indication: DRUG USE FOR UNKNOWN INDICATION
     Route: 042
     Dates: start: 20050511, end: 20050511
  9. FOSFOMYCIN CALCIUM [Concomitant]
     Indication: DRUG USE FOR UNKNOWN INDICATION
     Route: 042
     Dates: start: 20050511, end: 20050511

REACTIONS (4)
  - EXTRASYSTOLES [None]
  - VENTRICULAR ARRHYTHMIA [None]
  - VENTRICULAR EXTRASYSTOLES [None]
  - VENTRICULAR FIBRILLATION [None]
